FAERS Safety Report 11407228 (Version 2)
Quarter: 2015Q3

REPORT INFORMATION
  Report Type: Spontaneous
  Country: JP (occurrence: JP)
  Receive Date: 20150821
  Receipt Date: 20150903
  Transmission Date: 20151125
  Serious: Yes (Other)
  Sender: FDA-Public Use
  Company Number: PHJP2015JP012740

PATIENT
  Age: 41 Year
  Sex: Female

DRUGS (1)
  1. AFINITOR [Suspect]
     Active Substance: EVEROLIMUS
     Indication: ANGIOMYOLIPOMA
     Dosage: 10 MG, QD
     Route: 048

REACTIONS (6)
  - Lipids abnormal [Unknown]
  - Interstitial lung disease [Recovering/Resolving]
  - Proteinuria [Unknown]
  - Epilepsy [Unknown]
  - Stomatitis [Unknown]
  - Therapeutic response unexpected [Unknown]
